FAERS Safety Report 5307598-X (Version None)
Quarter: 2007Q2

REPORT INFORMATION
  Report Type: 
  Country: None (occurrence: None)
  Receive Date: 20070425
  Receipt Date: 20070416
  Transmission Date: 20071010
  Serious: Yes (Hospitalization)
  Sender: FDA-Public Use
  Company Number: GB-PFIZER INC-2007030618

PATIENT
  Age: 74 Year

DRUGS (7)
  1. ATORVASTATIN CALCIUM [Suspect]
     Route: 048
     Dates: start: 20040201
  2. AMLODIPINE [Concomitant]
     Route: 048
     Dates: start: 20060501
  3. GLICLAZIDE [Concomitant]
     Route: 048
  4. METFORMIN HCL [Concomitant]
     Route: 048
  5. PARACETAMOL [Concomitant]
     Route: 048
  6. PIOGLITAZONE [Concomitant]
     Route: 048
  7. SIMVASTATIN [Concomitant]
     Route: 048

REACTIONS (1)
  - HAEMORRHAGIC STROKE [None]
